FAERS Safety Report 7970464-5 (Version None)
Quarter: 2011Q4

REPORT INFORMATION
  Report Type: 
  Country: None (occurrence: None)
  Receive Date: 20111212
  Receipt Date: 20111201
  Transmission Date: 20120403
  Serious: Yes (Other)
  Sender: FDA-Public Use
  Company Number: PHEH2010US02681

PATIENT
  Sex: Female

DRUGS (2)
  1. EXJADE [Suspect]
     Dosage: 500 MG, BID
     Route: 048
     Dates: start: 20111102
  2. EXJADE [Suspect]
     Indication: IRON OVERLOAD
     Dosage: 500 MG, BID
     Route: 048
     Dates: start: 20091102, end: 20111011

REACTIONS (5)
  - ABDOMINAL DISCOMFORT [None]
  - RETCHING [None]
  - GASTROOESOPHAGEAL REFLUX DISEASE [None]
  - APLASTIC ANAEMIA [None]
  - TOXICITY TO VARIOUS AGENTS [None]
